FAERS Safety Report 6818401-0 (Version None)
Quarter: 2010Q3

REPORT INFORMATION
  Report Type: 
  Country: None (occurrence: None)
  Receive Date: 20100706
  Receipt Date: 20080129
  Transmission Date: 20110219
  Serious: No
  Sender: FDA-Public Use
  Company Number: US-PFIZER INC-2008004298

PATIENT
  Sex: Female

DRUGS (2)
  1. ZITHROMAX (CAPS) [Suspect]
     Indication: PHARYNGITIS STREPTOCOCCAL
     Dates: start: 20070101
  2. AZITHROMYCIN [Suspect]
     Dates: start: 20070101

REACTIONS (3)
  - INCORRECT DRUG ADMINISTRATION DURATION [None]
  - PHARYNGITIS STREPTOCOCCAL [None]
  - THERAPEUTIC RESPONSE DECREASED [None]
